FAERS Safety Report 24244168 (Version 1)
Quarter: 2024Q3

REPORT INFORMATION
  Report Type: Spontaneous
  Country: CN (occurrence: CN)
  Receive Date: 20240823
  Receipt Date: 20240823
  Transmission Date: 20241016
  Serious: Yes (Hospitalization)
  Sender: PFIZER
  Company Number: CN-PFIZER INC-PV202400108677

PATIENT
  Age: 32 Year
  Sex: Female
  Weight: 64 kg

DRUGS (3)
  1. METHOTREXATE SODIUM [Suspect]
     Active Substance: METHOTREXATE SODIUM
     Indication: Chemotherapy
     Dosage: 25 MG, 1X/DAY
     Route: 041
     Dates: start: 20240706, end: 20240710
  2. METHOTREXATE SODIUM [Suspect]
     Active Substance: METHOTREXATE SODIUM
     Indication: Benign hydatidiform mole
  3. SODIUM CHLORIDE [Concomitant]
     Active Substance: SODIUM CHLORIDE
     Indication: Vehicle solution use
     Dosage: 100 ML, 1X/DAY
     Route: 041
     Dates: start: 20240706, end: 20240710

REACTIONS (15)
  - Rash [Recovering/Resolving]
  - Rash pruritic [Recovering/Resolving]
  - Skin disorder [Recovering/Resolving]
  - Dysphoria [Recovering/Resolving]
  - Pyrexia [Recovering/Resolving]
  - Mouth ulceration [Recovering/Resolving]
  - Feeding disorder [Recovering/Resolving]
  - Pain of skin [Recovering/Resolving]
  - Hypoaesthesia [Recovering/Resolving]
  - Otorrhoea [Recovering/Resolving]
  - Nausea [Recovering/Resolving]
  - Vomiting [Recovering/Resolving]
  - Hyperhidrosis [Recovering/Resolving]
  - Hand deformity [Recovering/Resolving]
  - Gastrointestinal disorder [Recovered/Resolved]

NARRATIVE: CASE EVENT DATE: 20240710
